FAERS Safety Report 6370098-2 (Version None)
Quarter: 2009Q3

REPORT INFORMATION
  Report Type: 
  Country: None (occurrence: None)
  Receive Date: 20090923
  Receipt Date: 20070515
  Transmission Date: 20100115
  Serious: No
  Sender: FDA-Public Use
  Company Number: US-ASTRAZENECA-2006UW20846

PATIENT
  Age: 11325 Day
  Sex: Female
  Weight: 72.1 kg

DRUGS (16)
  1. SEROQUEL [Suspect]
     Indication: ANXIETY
     Dosage: 25 MG-200 MG
     Route: 048
     Dates: start: 20010111
  2. SEROQUEL [Suspect]
     Indication: SCHIZOPHRENIA
     Dosage: 25 MG-200 MG
     Route: 048
     Dates: start: 20010111
  3. SEROQUEL [Suspect]
     Route: 048
     Dates: start: 20010112
  4. SEROQUEL [Suspect]
     Route: 048
     Dates: start: 20010112
  5. ABILIFY [Concomitant]
  6. GEODON [Concomitant]
  7. HALDOL [Concomitant]
  8. NAVANE [Concomitant]
  9. RISPERDAL [Concomitant]
     Dates: start: 20010112
  10. TRILAFON [Concomitant]
  11. ZYPREXA [Concomitant]
  12. EFFEXOR XR [Concomitant]
  13. BUSPIRONE HCL [Concomitant]
  14. XANAX [Concomitant]
  15. NEURONTIN [Concomitant]
  16. MEDROXYPROGESTERONE [Concomitant]

REACTIONS (3)
  - DIABETES MELLITUS [None]
  - OBESITY [None]
  - WEIGHT INCREASED [None]
